FAERS Safety Report 26015708 (Version 2)
Quarter: 2025Q4

REPORT INFORMATION
  Report Type: Spontaneous
  Country: JP (occurrence: JP)
  Receive Date: 20251109
  Receipt Date: 20251114
  Transmission Date: 20260118
  Serious: Yes (Other)
  Sender: NOVARTIS
  Company Number: JP-002147023-NVSJ2025JP010691

PATIENT
  Age: 76 Year
  Sex: Male

DRUGS (5)
  1. ENTRESTO [Suspect]
     Active Substance: SACUBITRIL\VALSARTAN
     Indication: Hypertension
     Dosage: 200 MG
     Route: 048
  2. ENTRESTO [Suspect]
     Active Substance: SACUBITRIL\VALSARTAN
     Dosage: 400 MG
     Route: 048
  3. AMLODIPINE [Concomitant]
     Active Substance: AMLODIPINE BESYLATE
     Indication: Product used for unknown indication
     Dosage: 10 MG
     Route: 065
  4. ESAXERENONE [Concomitant]
     Active Substance: ESAXERENONE
     Indication: Hypertension
     Dosage: 2.5 MG
     Route: 065
  5. ESAXERENONE [Concomitant]
     Active Substance: ESAXERENONE
     Dosage: 5 MG
     Route: 065

REACTIONS (3)
  - Diabetes mellitus [Unknown]
  - Abdominal mass [Unknown]
  - COVID-19 [Recovered/Resolved]
